FAERS Safety Report 8221805-5 (Version None)
Quarter: 2012Q1

REPORT INFORMATION
  Report Type: 
  Country: None (occurrence: None)
  Receive Date: 20120307
  Receipt Date: 20101101
  Transmission Date: 20120608
  Serious: Yes (Other)
  Sender: FDA-Public Use
  Company Number: PHHY2010US74121

PATIENT
  Sex: Male

DRUGS (1)
  1. AFINITOR [Suspect]
     Indication: RENAL CANCER
     Dosage: 10 MG/DAY, ORAL
     Route: 048
     Dates: start: 20100825, end: 20101024

REACTIONS (1)
  - METASTASES TO CENTRAL NERVOUS SYSTEM [None]
